FAERS Safety Report 7593454-3 (Version None)
Quarter: 2011Q3

REPORT INFORMATION
  Report Type: 
  Country: None (occurrence: None)
  Receive Date: 20110706
  Receipt Date: 20110628
  Transmission Date: 20111222
  Serious: Yes (Other)
  Sender: FDA-Public Use
  Company Number: JP-MERCK-1107USA00217

PATIENT
  Age: 87 Year
  Sex: Male
  Weight: 45 kg

DRUGS (20)
  1. WARFARIN [Concomitant]
     Indication: CEREBRAL INFARCTION
     Route: 065
  2. FAMOTIDINE [Concomitant]
     Route: 065
     Dates: end: 20110613
  3. SODIUM CHLORIDE [Concomitant]
     Route: 065
     Dates: start: 20110603, end: 20110609
  4. DIAZEPAM [Concomitant]
     Route: 065
     Dates: start: 20110605, end: 20110611
  5. LENDEM [Concomitant]
     Route: 065
     Dates: start: 20110614
  6. METOPROLOL TARTRATE [Concomitant]
     Indication: HYPERTENSION
     Route: 065
     Dates: end: 20110613
  7. HALTHROW [Concomitant]
     Indication: HYPERTENSION
     Route: 065
     Dates: end: 20110613
  8. CELECOXIB [Concomitant]
     Route: 065
     Dates: end: 20110609
  9. LOPRESSOR [Concomitant]
     Indication: HYPERTENSION
     Route: 065
     Dates: start: 20110614
  10. LOPRESSOR [Concomitant]
     Indication: ARRHYTHMIA
     Route: 065
     Dates: start: 20110614
  11. NEUROTROPIN [Concomitant]
     Indication: LUMBAR VERTEBRAL FRACTURE
     Route: 065
     Dates: start: 20110603, end: 20110609
  12. RHYTHMY [Concomitant]
     Route: 065
     Dates: start: 20110608, end: 20110613
  13. ZOLPIDEM [Suspect]
     Route: 048
     Dates: end: 20110613
  14. EVIPROSTAT [Concomitant]
     Indication: BENIGN PROSTATIC HYPERPLASIA
     Route: 065
  15. METOPROLOL TARTRATE [Concomitant]
     Indication: ARRHYTHMIA
     Route: 065
     Dates: end: 20110613
  16. ALOSENN [Concomitant]
     Route: 065
  17. ISALON [Concomitant]
     Route: 065
     Dates: end: 20110609
  18. PEPCID RPD [Suspect]
     Route: 048
     Dates: start: 20110614
  19. VOLTAREN [Concomitant]
     Route: 065
  20. TAMSULOSIN HCL [Concomitant]
     Route: 065
     Dates: start: 20110614

REACTIONS (2)
  - SOMNAMBULISM [None]
  - DELIRIUM [None]
